FAERS Safety Report 8081914-0 (Version None)
Quarter: 2012Q1

REPORT INFORMATION
  Report Type: 
  Country: None (occurrence: None)
  Receive Date: 20120130
  Receipt Date: 20120125
  Transmission Date: 20120608
  Serious: No
  Sender: FDA-Public Use
  Company Number: US-BAYER-2012-009168

PATIENT
  Age: 54 Year
  Sex: Male
  Weight: 68 kg

DRUGS (5)
  1. ASPIRIN [Concomitant]
  2. PROBIOTICS [Concomitant]
  3. ACYCLOVIR [Concomitant]
  4. ALEVE (CAPLET) [Suspect]
     Indication: BACK PAIN
     Dosage: UNK
     Route: 048
     Dates: start: 20120124, end: 20120125
  5. LYSINE [Concomitant]

REACTIONS (1)
  - BACK PAIN [None]
